FAERS Safety Report 5487577-2 (Version None)
Quarter: 2007Q4

REPORT INFORMATION
  Report Type: 
  Country: None (occurrence: None)
  Receive Date: 20071015
  Receipt Date: 20071001
  Transmission Date: 20080405
  Serious: Yes (Hospitalization)
  Sender: FDA-Public Use
  Company Number: 106976ISR

PATIENT
  Age: 38 Year
  Sex: Female

DRUGS (11)
  1. GLATIRAMER ACETATE [Suspect]
     Indication: RELAPSING-REMITTING MULTIPLE SCLEROSIS
     Dosage: 20 MG (20 MG, ONCE A DAY); SUBCUTANEOUS
     Route: 058
     Dates: start: 20040116, end: 20050509
  2. PREDNISOLONE [Concomitant]
  3. NEXIUM [Concomitant]
  4. TETRAZEPAM [Concomitant]
  5. COLECALCIFEROL [Concomitant]
  6. TRIAMVASK-CREME [Concomitant]
  7. CERTOSTAT [Concomitant]
  8. MAGNESIUM SULFATE [Concomitant]
  9. ASCORBIC ACID [Concomitant]
  10. PROPIVERINE HYDROCHLORIDE [Concomitant]
  11. ESOMEPRAZOLE [Concomitant]

REACTIONS (19)
  - BRONCHOSCOPY ABNORMAL [None]
  - C-REACTIVE PROTEIN INCREASED [None]
  - COMPUTERISED TOMOGRAM THORAX ABNORMAL [None]
  - CONDITION AGGRAVATED [None]
  - DISEASE RECURRENCE [None]
  - ERYTHEMA NODOSUM [None]
  - HAEMORRHAGE SUBCUTANEOUS [None]
  - INFLAMMATION [None]
  - JOINT SWELLING [None]
  - MULTIPLE SCLEROSIS [None]
  - OEDEMA PERIPHERAL [None]
  - PAIN [None]
  - POLYARTHRITIS [None]
  - RASH MACULO-PAPULAR [None]
  - RED BLOOD CELL SEDIMENTATION RATE INCREASED [None]
  - SARCOIDOSIS [None]
  - SEPTAL PANNICULITIS [None]
  - URINARY TRACT INFECTION [None]
  - WHITE BLOOD CELL COUNT ABNORMAL [None]
